FAERS Safety Report 4429442-5 (Version None)
Quarter: 2004Q3

REPORT INFORMATION
  Report Type: 
  Country: None (occurrence: None)
  Receive Date: 20040816
  Receipt Date: 20040730
  Transmission Date: 20050211
  Serious: Yes (Disabling)
  Sender: FDA-Public Use
  Company Number: 190181

PATIENT
  Age: 55 Year
  Sex: Female

DRUGS (1)
  1. AVONEX [Suspect]
     Indication: MULTIPLE SCLEROSIS
     Dosage: 30 MCG QW IM
     Dates: start: 20000101

REACTIONS (5)
  - BLINDNESS [None]
  - MACULOPATHY [None]
  - NEOVASCULARISATION [None]
  - SCOTOMA [None]
  - VISUAL DISTURBANCE [None]
